FAERS Safety Report 26183796 (Version 1)
Quarter: 2025Q4

REPORT INFORMATION
  Report Type: Spontaneous
  Country: US (occurrence: US)
  Receive Date: 20251221
  Receipt Date: 20251221
  Transmission Date: 20260118
  Serious: No
  Sender: TEVA
  Company Number: US-ABBVIE-6580844

PATIENT
  Age: 4 Year
  Sex: Male
  Weight: 3 kg

DRUGS (1)
  1. OXYTROL [Suspect]
     Active Substance: OXYBUTYNIN
     Indication: Hypertonic bladder
     Route: 062
     Dates: start: 20251003, end: 20251205

REACTIONS (2)
  - Administration site rash [Not Recovered/Not Resolved]
  - Off label use [Unknown]

NARRATIVE: CASE EVENT DATE: 20250101
